FAERS Safety Report 15849115 (Version 4)
Quarter: 2019Q4

REPORT INFORMATION
  Report Type: Report from Study
  Country: NO (occurrence: NO)
  Receive Date: 20190121
  Receipt Date: 20191104
  Transmission Date: 20200122
  Serious: Yes (Hospitalization)
  Sender: FDA-Public Use
  Company Number: NO-AMGEN-NORNI2019006435

PATIENT
  Age: 43 Year
  Sex: Female
  Weight: 80 kg

DRUGS (21)
  1. ARANESP [Concomitant]
     Active Substance: DARBEPOETIN ALFA
     Dosage: 60 MICROGRAM
     Dates: start: 20180604, end: 20180814
  2. EFEXOR [Concomitant]
     Active Substance: VENLAFAXINE HYDROCHLORIDE
     Dosage: 150 MILLIGRAM
     Dates: start: 20170830
  3. IMOVANE [Concomitant]
     Active Substance: ZOPICLONE
     Dosage: 5 MILLIGRAM
     Dates: start: 20170621, end: 20180621
  4. OXYNORM [Concomitant]
     Active Substance: OXYCODONE HYDROCHLORIDE
     Dosage: 5 MILLIGRAM
     Dates: start: 20180716, end: 20190130
  5. BURINEX [Concomitant]
     Active Substance: BUMETANIDE
     Dosage: 1 MILLIGRAM
     Dates: start: 20180604, end: 20190716
  6. PARACETAMOL [Concomitant]
     Active Substance: ACETAMINOPHEN
     Dosage: 1 GRAM
     Dates: start: 20180716
  7. ADALAT [Concomitant]
     Active Substance: NIFEDIPINE
     Dosage: 60 MILLIGRAM
     Dates: start: 20180604
  8. ESTRADOT [Concomitant]
     Active Substance: ESTRADIOL
     Dosage: 100 MICROGRAM
     Dates: start: 20170522, end: 20180522
  9. CYKLOKAPRON [Concomitant]
     Active Substance: TRANEXAMIC ACID
     Dosage: 5 UNK
     Dates: start: 20180605, end: 20180924
  10. ALBYL-E [Concomitant]
     Active Substance: ASPIRIN\MAGNESIUM OXIDE
     Dosage: 75 MILLIGRAM
     Dates: start: 20141023
  11. DARATUMUMAB [Concomitant]
     Active Substance: DARATUMUMAB
     Dosage: 1280 MILLIGRAM
     Dates: start: 20180726, end: 20190204
  12. CARFILZOMIB [Suspect]
     Active Substance: CARFILZOMIB
     Indication: PLASMA CELL MYELOMA
     Dosage: 56 MILLIGRAM/SQ. METER (109.76 MILLIGRAM),
     Route: 042
     Dates: start: 20180726
  13. LYRICA [Concomitant]
     Active Substance: PREGABALIN
     Dosage: 25 MILLIGRAM
     Dates: start: 20180723, end: 20180923
  14. LAXOBERAL [Concomitant]
     Active Substance: SODIUM PICOSULFATE
     Dosage: 10 GTT DROPS
     Dates: start: 20171023, end: 20181023
  15. ATACAND [Concomitant]
     Active Substance: CANDESARTAN CILEXETIL
     Dosage: 8 MILLIGRAM
     Dates: start: 20180606, end: 20190312
  16. DEXAMETHASONE. [Concomitant]
     Active Substance: DEXAMETHASONE
     Indication: PLASMA CELL MYELOMA
     Dosage: 20 MILLIGRAM
     Dates: start: 20180726
  17. VIVAL [Concomitant]
     Active Substance: DIAZEPAM
     Dosage: 2 MILLIGRAM
     Dates: start: 20171009, end: 20181009
  18. ONDANSETRON [Concomitant]
     Active Substance: ONDANSETRON
     Dosage: 8 MILLIGRAM
     Dates: start: 20170503, end: 20181023
  19. CARDURA CR [Concomitant]
     Active Substance: DOXAZOSIN MESYLATE
     Dosage: 8 MILLIGRAM
     Dates: start: 20180604
  20. COSYLAN [Concomitant]
     Dosage: 17 MILLIGRAM
     Dates: start: 20170927, end: 20180927
  21. AFIPRAN [Concomitant]
     Active Substance: METOCLOPRAMIDE HYDROCHLORIDE
     Dosage: 10 MILLIGRAM
     Dates: start: 20171006

REACTIONS (2)
  - Anaemia [Recovered/Resolved]
  - Syncope [Recovered/Resolved]

NARRATIVE: CASE EVENT DATE: 20180807
